FAERS Safety Report 10398914 (Version 1)
Quarter: 2014Q1

REPORT INFORMATION
  Report Type: Spontaneous
  Country: US (occurrence: None)
  Receive Date: 20130815
  Receipt Date: 20130815
  Transmission Date: 20141002
  Serious: Yes (Other)
  Sender: FDA-Public Use
  Company Number: ADR-2012-01680

PATIENT
  Age: 19 Year
  Sex: Female

DRUGS (1)
  1. LIORESAL INTRATHECAL (BACLOFEN INJECTION) 500 MCG/ML [Suspect]
     Indication: MUSCLE SPASTICITY

REACTIONS (5)
  - Implant site extravasation [None]
  - Headache [None]
  - Pain [None]
  - Intracranial hypotension [None]
  - Implant site discharge [None]
